FAERS Safety Report 8860992 (Version 4)
Quarter: 2013Q2

REPORT INFORMATION
  Report Type: Spontaneous
  Country: US (occurrence: US)
  Receive Date: 20121025
  Receipt Date: 20130415
  Transmission Date: 20140414
  Serious: Yes (Hospitalization, Other)
  Sender: FDA-Public Use
  Company Number: US-009507513-1203USA01176

PATIENT
  Sex: Female
  Weight: 59.48 kg

DRUGS (8)
  1. FOSAMAX [Suspect]
     Indication: OSTEOPOROSIS
     Dosage: UNK
     Route: 048
     Dates: start: 1998, end: 200912
  2. FOSAMAX [Suspect]
     Indication: OSTEOPENIA
     Dosage: 70 MG, QW
     Route: 048
     Dates: end: 200502
  3. FOSAMAX [Suspect]
     Dosage: 70 MG, QW
     Route: 048
     Dates: start: 200510, end: 201104
  4. FOSAMAX [Suspect]
     Indication: OSTEOPOROSIS
     Dosage: UNK
     Route: 048
     Dates: start: 200912, end: 201104
  5. FOSAMAX [Suspect]
     Dosage: 70 MG, QW
     Route: 048
     Dates: start: 20100911, end: 201011
  6. FOSAMAX PLUS D [Suspect]
     Indication: OSTEOPOROSIS
     Dosage: 70 MG, QW
     Route: 048
  7. ALENDRONATE SODIUM [Suspect]
     Dosage: 70 MG, QW
     Dates: start: 20081129, end: 201009
  8. ACTONEL [Suspect]
     Indication: OSTEOPOROSIS
     Dosage: 35 MG, UNK
     Dates: start: 200502, end: 200508

REACTIONS (45)
  - Femur fracture [Unknown]
  - Rotator cuff repair [Unknown]
  - Rotator cuff repair [Unknown]
  - Pancreatobiliary sphincterotomy [Unknown]
  - Anaemia postoperative [Unknown]
  - Open reduction of fracture [Unknown]
  - Cholecystectomy [Unknown]
  - Low turnover osteopathy [Unknown]
  - Anaemia [Unknown]
  - Gingival graft [Unknown]
  - Impaired healing [Unknown]
  - Impaired healing [Unknown]
  - Ankle fracture [Unknown]
  - Fall [Unknown]
  - Hypertension [Unknown]
  - Peptic ulcer [Unknown]
  - Arthritis [Unknown]
  - Cervical radiculopathy [Unknown]
  - Migraine [Unknown]
  - Cellulitis [Unknown]
  - Cough [Unknown]
  - Fatigue [Unknown]
  - Haemorrhoids [Unknown]
  - Melanocytic naevus [Unknown]
  - Weight increased [Unknown]
  - Menorrhagia [Unknown]
  - Acute sinusitis [Unknown]
  - Limb asymmetry [Unknown]
  - Atrophic vulvovaginitis [Unknown]
  - Dermatitis [Unknown]
  - Pollakiuria [Unknown]
  - Spinal osteoarthritis [Unknown]
  - Osteoarthritis [Unknown]
  - Head injury [Unknown]
  - Road traffic accident [Unknown]
  - Helicobacter infection [Unknown]
  - Drug ineffective [Unknown]
  - Gastrooesophageal reflux disease [Unknown]
  - Gastrooesophageal reflux disease [Unknown]
  - Rash [Unknown]
  - Arthralgia [Unknown]
  - Nausea [Unknown]
  - Drug ineffective [Unknown]
  - Musculoskeletal pain [Unknown]
  - Back pain [Unknown]
